FAERS Safety Report 7900737-3 (Version None)
Quarter: 2011Q4

REPORT INFORMATION
  Report Type: 
  Country: None (occurrence: None)
  Receive Date: 20111108
  Receipt Date: 20111025
  Transmission Date: 20120403
  Serious: Yes (Hospitalization, Other)
  Sender: FDA-Public Use
  Company Number: US-ELI_LILLY_AND_COMPANY-US201006006069

PATIENT
  Sex: Female
  Weight: 49.433 kg

DRUGS (29)
  1. FORTEO [Suspect]
     Dosage: 20 UG, DAILY (1/D)
     Route: 065
  2. ZYLOPRIM [Concomitant]
  3. BENADRYL [Concomitant]
  4. MONOKET [Concomitant]
  5. TYLENOL-500 [Concomitant]
  6. FORTEO [Suspect]
     Dosage: 20 UG, QD
     Route: 065
  7. FORTEO [Suspect]
     Dosage: 20 UG, QD
     Route: 065
  8. PLAVIX [Concomitant]
     Dosage: UNK, DAILY (1/D)
  9. SYNTHROID [Concomitant]
     Dosage: UNK, DAILY (1/D)
  10. AMBIEN [Concomitant]
  11. PRAVACHOL [Concomitant]
  12. ASPIRIN [Concomitant]
  13. COREG [Concomitant]
  14. IRON [Concomitant]
  15. FORTEO [Suspect]
     Dosage: 20 UG, DAILY (1/D)
     Route: 065
  16. FORTEO [Suspect]
     Dosage: 20 UG, QD
  17. MYLANTA [Concomitant]
  18. CALCIUM [Concomitant]
     Dosage: UNK, 2/D
  19. MULTI-VITAMIN [Concomitant]
     Dosage: UNK, DAILY (1/D)
  20. CARVEDILOL [Concomitant]
  21. FORTEO [Suspect]
     Indication: OSTEOPOROSIS
     Dosage: 20 UG, DAILY (1/D)
     Route: 065
  22. FERROUS SULFATE TAB [Concomitant]
  23. LEXAPRO [Concomitant]
  24. SUCRALFATE [Concomitant]
     Dosage: UNK, DAILY (1/D)
  25. FORTEO [Suspect]
     Dosage: 20 UG, QD
     Route: 065
  26. FORTEO [Suspect]
     Dosage: 20 UG, QD
  27. ASPIRIN [Concomitant]
     Dosage: 325 MG, DAILY (1/D)
  28. VITAMIN D [Concomitant]
     Dosage: UNK, 2/D
  29. NITROGLYCERIN [Concomitant]
     Dosage: UNK, AS NEEDED

REACTIONS (16)
  - FATIGUE [None]
  - DYSPEPSIA [None]
  - CORONARY ARTERY DISEASE [None]
  - CONTUSION [None]
  - PAIN IN EXTREMITY [None]
  - MALAISE [None]
  - MYOCARDIAL INFARCTION [None]
  - CYSTITIS [None]
  - MUSCLE SPASMS [None]
  - LIMB INJURY [None]
  - DIZZINESS [None]
  - CONSTIPATION [None]
  - GASTROOESOPHAGEAL REFLUX DISEASE [None]
  - DIARRHOEA [None]
  - INJECTION SITE PAIN [None]
  - INJECTION SITE HAEMATOMA [None]
